FAERS Safety Report 13385969 (Version 1)
Quarter: 2017Q1

REPORT INFORMATION
  Report Type: Spontaneous
  Country: US (occurrence: US)
  Receive Date: 20170330
  Receipt Date: 20170330
  Transmission Date: 20170429
  Serious: Yes (Hospitalization, Other)
  Sender: FDA-Public Use
  Company Number: US-NOVOPROD-537312

PATIENT
  Age: 70 Year
  Sex: Female
  Weight: 80.27 kg

DRUGS (6)
  1. NOVOLOG [Suspect]
     Active Substance: INSULIN ASPART
     Indication: TYPE 2 DIABETES MELLITUS
     Dosage: UNKNOWN DOSE FROM VIAL
     Route: 058
  2. NOVOLOG [Suspect]
     Active Substance: INSULIN ASPART
     Dosage: UNKNOWN DOSE FROM FLEXPEN
     Route: 058
  3. LEVEMIR [Suspect]
     Active Substance: INSULIN DETEMIR
     Indication: TYPE 2 DIABETES MELLITUS
     Dosage: UNKNOWN DOSE WHILE ON VIAL
     Route: 058
  4. NOVOLOG [Suspect]
     Active Substance: INSULIN ASPART
     Dosage: 10 U AT BREAKFAST, 8 U AT LUNCH, 10 U AT DINNER OF FLEXPEN
     Route: 058
  5. LEVEMIR [Suspect]
     Active Substance: INSULIN DETEMIR
     Dosage: UNKNOWN DOSE WHILE ON FLEXTOUCH
     Route: 058
  6. LEVEMIR [Suspect]
     Active Substance: INSULIN DETEMIR
     Dosage: 20 U IN AM AND 20 U IN PM WHILE ON FLEXTOUCH

REACTIONS (8)
  - Retinopathy [Unknown]
  - Hyperglycaemia [Unknown]
  - Leukaemia [Unknown]
  - Vitreous haemorrhage [Unknown]
  - Hypoglycaemia [Unknown]
  - Memory impairment [Not Recovered/Not Resolved]
  - Vitreous floaters [Not Recovered/Not Resolved]
  - Glycosylated haemoglobin increased [Recovered/Resolved]

NARRATIVE: CASE EVENT DATE: 2007
